FAERS Safety Report 4418478-6 (Version None)
Quarter: 2004Q3

REPORT INFORMATION
  Report Type: 
  Country: None (occurrence: None)
  Receive Date: 20040809
  Receipt Date: 20040510
  Transmission Date: 20050211
  Serious: No
  Sender: FDA-Public Use
  Company Number: US-GLAXOSMITHKLINE-A0510176A

PATIENT
  Age: 52 Year
  Sex: Male

DRUGS (1)
  1. PAXIL CR [Suspect]
     Indication: DEPRESSION
     Dosage: 25MG UNKNOWN
     Route: 048
     Dates: start: 20040401, end: 20040505

REACTIONS (5)
  - ANXIETY [None]
  - DRUG INEFFECTIVE [None]
  - EJACULATION FAILURE [None]
  - HEADACHE [None]
  - SLEEP DISORDER [None]
